FAERS Safety Report 9288867 (Version 1)
Quarter: 2013Q2

REPORT INFORMATION
  Report Type: Report from Study
  Country: US (occurrence: US)
  Receive Date: 20130514
  Receipt Date: 20130514
  Transmission Date: 20140414
  Serious: Yes (Hospitalization, Other)
  Sender: FDA-Public Use
  Company Number: US-ABBOTT-13P-163-1085338-00

PATIENT
  Age: 23 Year
  Sex: Female

DRUGS (1)
  1. HUMIRA [Suspect]
     Indication: COLITIS ULCERATIVE
     Dates: start: 20130116, end: 20130116

REACTIONS (13)
  - Haemoglobin decreased [Unknown]
  - Clostridium difficile infection [Unknown]
  - Clostridium difficile infection [Unknown]
  - Anaemia [Unknown]
  - Chest discomfort [Recovered/Resolved]
  - Abdominal distension [Unknown]
  - Pyrexia [Unknown]
  - Anxiety [Unknown]
  - Incorrect dose administered [Unknown]
  - Device malfunction [Unknown]
  - Drug hypersensitivity [Recovered/Resolved]
  - Syncope [Unknown]
  - Hypoaesthesia [Unknown]
